FAERS Safety Report 16109620 (Version 2)
Quarter: 2019Q1

REPORT INFORMATION
  Report Type: Report from Study
  Country: None (occurrence: US)
  Receive Date: 20190324
  Receipt Date: 20190327
  Transmission Date: 20190418
  Serious: Yes (Other)
  Sender: FDA-Public Use
  Company Number: US-ABBVIE-18K-163-2565767-00

PATIENT
  Sex: Female

DRUGS (1)
  1. HUMIRA [Suspect]
     Active Substance: ADALIMUMAB
     Indication: CROHN^S DISEASE
     Dosage: HUMIRA CF
     Route: 058

REACTIONS (5)
  - Lactose intolerance [Unknown]
  - Bile duct stone [Unknown]
  - Injection site pain [Not Recovered/Not Resolved]
  - Cholecystectomy [Unknown]
  - Stool pH increased [Unknown]
